FAERS Safety Report 5300032-5 (Version None)
Quarter: 2007Q2

REPORT INFORMATION
  Report Type: 
  Country: None (occurrence: None)
  Receive Date: 20070410
  Receipt Date: 20070326
  Transmission Date: 20071010
  Serious: No
  Sender: FDA-Public Use
  Company Number: B0463821A

PATIENT
  Age: 50 Year
  Sex: Male

DRUGS (4)
  1. AVANDAMET [Suspect]
     Indication: DIABETES MELLITUS NON-INSULIN-DEPENDENT
     Dosage: 1 TABLET / FOUR TIMES PER DAY / ORAL
     Route: 048
     Dates: start: 20060301
  2. ATORVASTATIN CALCIUM [Concomitant]
  3. ESOMEPRAZOLE MAGNESIUM [Concomitant]
  4. ANTIHYPERTENSIVE [Concomitant]

REACTIONS (4)
  - AGGRESSION [None]
  - BLOOD CREATINE PHOSPHOKINASE INCREASED [None]
  - DRUG ADMINISTRATION ERROR [None]
  - MYALGIA [None]
